FAERS Safety Report 24767507 (Version 1)
Quarter: 2024Q4

REPORT INFORMATION
  Report Type: Spontaneous
  Country: CH (occurrence: CH)
  Receive Date: 20241223
  Receipt Date: 20241223
  Transmission Date: 20250114
  Serious: Yes (Life-Threatening, Hospitalization, Other)
  Sender: MYLAN
  Company Number: None

PATIENT
  Age: 47 Year
  Sex: Female
  Weight: 67 kg

DRUGS (20)
  1. NEURONTIN [Interacting]
     Active Substance: GABAPENTIN
     Indication: Product used for unknown indication
     Dosage: 600 MILLIGRAM, BID (STARTED WITH PROGRESSIVE TITRATION)
     Route: 065
     Dates: start: 202409, end: 202411
  2. NEURONTIN [Interacting]
     Active Substance: GABAPENTIN
     Dosage: 1200 MILLIGRAM, QD (STARTED WITH PROGRESSIVE TITRATION)
     Route: 065
     Dates: start: 202409, end: 202411
  3. KETAMINE [Interacting]
     Active Substance: KETAMINE
     Indication: Product used for unknown indication
     Dosage: 20 MILLIGRAM, TOTAL
     Route: 042
     Dates: start: 20240901, end: 20241001
  4. KETAMINE [Interacting]
     Active Substance: KETAMINE
     Dosage: 10 MILLIGRAM, TOTAL
     Route: 042
     Dates: start: 20241001, end: 20241001
  5. CLONIDINE [Interacting]
     Active Substance: CLONIDINE
     Indication: Product used for unknown indication
     Dosage: 30 MICROGRAM TOTAL (TITRATED (UP TO 105 MCG) )
     Route: 042
     Dates: start: 20241001, end: 20241001
  6. MORPHINE [Interacting]
     Active Substance: MORPHINE
     Indication: Product used for unknown indication
     Dosage: 10 MILLIGRAM, TOTAL
     Route: 042
     Dates: start: 20241001, end: 20241001
  7. MORPHINE [Interacting]
     Active Substance: MORPHINE
     Dosage: UNK, QD (60-105 MG/D)
     Route: 042
     Dates: start: 202410
  8. MIDAZOLAM [Interacting]
     Active Substance: MIDAZOLAM
     Indication: Product used for unknown indication
     Dosage: 1 MILLIGRAM, TOTAL
     Route: 042
     Dates: start: 20241001, end: 20241001
  9. VENLAFAXINE [Concomitant]
     Active Substance: VENLAFAXINE HYDROCHLORIDE
     Indication: Depression
     Dosage: 112.5 MILLIGRAM, QD
     Route: 065
  10. NIFEDIPINE [Concomitant]
     Active Substance: NIFEDIPINE
     Dosage: 20 MILLIGRAM, QD
     Route: 065
  11. HYDROXYZINE [Concomitant]
     Active Substance: HYDROXYZINE HYDROCHLORIDE
     Dosage: 25 MILLIGRAM, QD (IN THE EVENING )
     Route: 065
  12. HYDROXYZINE [Concomitant]
     Active Substance: HYDROXYZINE HYDROCHLORIDE
     Dosage: 12.5 MILLIGRAM, BID (12.5 MG 2X/D PRN)
     Route: 065
  13. PROPOFOL [Concomitant]
     Active Substance: PROPOFOL
     Dosage: 400 MILLIGRAM, TOTAL
     Route: 042
     Dates: start: 20241001, end: 20241001
  14. SUFENTANIL [Concomitant]
     Active Substance: SUFENTANIL
     Dosage: 20 MICROGRAM, TOTAL
     Route: 042
     Dates: start: 20241001, end: 20241001
  15. DEXAMETHASONE [Concomitant]
     Active Substance: DEXAMETHASONE
     Dosage: 8 MILLIGRAM, TOTAL
     Route: 042
     Dates: start: 20241001, end: 20241001
  16. ONDANSETRON [Concomitant]
     Active Substance: ONDANSETRON
     Dosage: 4 MILLIGRAM, TOTAL
     Route: 042
     Dates: start: 20241001, end: 20241001
  17. KETOROLAC TROMETHAMINE [Concomitant]
     Active Substance: KETOROLAC TROMETHAMINE
     Dosage: 30 MILLIGRAM, TOTAL
     Route: 042
     Dates: start: 20241001, end: 20241001
  18. PERFALGAN [Concomitant]
     Active Substance: ACETAMINOPHEN
     Dosage: 1 GRAM, TOTAL
     Route: 042
     Dates: start: 20241001, end: 20241001
  19. CEFUROXIME [Concomitant]
     Active Substance: CEFUROXIME
     Dosage: 1.5 GRAM, TOTAL
     Route: 042
     Dates: start: 20241001, end: 20241001
  20. LIDOCAINE [Concomitant]
     Active Substance: LIDOCAINE
     Dosage: 50 MILLIGRAM, TOTAL (1 PERCENT)
     Route: 042
     Dates: start: 20241001, end: 20241001

REACTIONS (6)
  - Cardio-respiratory arrest [Recovered/Resolved]
  - Syncope [Recovered/Resolved]
  - Cardiac arrest [Recovered/Resolved]
  - Drug interaction [Recovered/Resolved]
  - Loss of consciousness [Recovered/Resolved]
  - Vomiting [Recovered/Resolved]

NARRATIVE: CASE EVENT DATE: 20241001
